FAERS Safety Report 4266845-6 (Version None)
Quarter: 2004Q1

REPORT INFORMATION
  Report Type: 
  Country: None (occurrence: None)
  Receive Date: 20040108
  Receipt Date: 20031112
  Transmission Date: 20041129
  Serious: Yes (Hospitalization)
  Sender: FDA-Public Use
  Company Number: WAES 0311USA01838

PATIENT
  Age: 89 Year
  Sex: Female

DRUGS (15)
  1. CARBOHYDRATES (UNSPECIFIED) AND ELECTROLYTES (UNSPECIFIED) AND AMINO A [Concomitant]
     Route: 042
     Dates: start: 20030911, end: 20030914
  2. NORVASC [Concomitant]
     Route: 048
     Dates: start: 20030524
  3. ASCORBIC ACID [Concomitant]
  4. ASCORBIC ACID [Concomitant]
     Route: 042
     Dates: start: 20030911, end: 20030911
  5. LENDORMIN [Concomitant]
     Route: 048
     Dates: start: 20030522
  6. CEFMETAZOLE SODIUM [Concomitant]
  7. CEFMETAZOLE SODIUM [Concomitant]
     Route: 042
     Dates: start: 20030912, end: 20030913
  8. PEPCID [Suspect]
     Route: 048
     Dates: start: 20030911, end: 20030912
  9. PEPCID [Suspect]
     Route: 048
     Dates: start: 20030913, end: 20030914
  10. FLAVITAN [Concomitant]
  11. FLAVITAN [Concomitant]
     Route: 042
     Dates: start: 20030911, end: 20030911
  12. SENNA [Concomitant]
     Route: 048
  13. NEOLAMIN [Concomitant]
  14. NEOLAMIN [Concomitant]
     Route: 042
     Dates: start: 20030911, end: 20030911
  15. BASEN [Concomitant]
     Route: 048
     Dates: start: 20030519

REACTIONS (4)
  - DISORIENTATION [None]
  - HALLUCINATION [None]
  - HUNGER [None]
  - PSYCHOTIC DISORDER [None]
